FAERS Safety Report 24675208 (Version 3)
Quarter: 2024Q4

REPORT INFORMATION
  Report Type: Spontaneous
  Country: US (occurrence: US)
  Receive Date: 20241128
  Receipt Date: 20241216
  Transmission Date: 20250115
  Serious: No
  Sender: BIOGEN
  Company Number: US-BIOGEN-2021BI01024587

PATIENT
  Age: 50 Year
  Sex: Female

DRUGS (20)
  1. VUMERITY [Suspect]
     Active Substance: DIROXIMEL FUMARATE
     Indication: Multiple sclerosis
     Dosage: 2 CAPSULES?MAINTENANCE DOSE
     Route: 050
     Dates: start: 20210610
  2. BACLOFEN [Concomitant]
     Active Substance: BACLOFEN
     Route: 050
  3. AMBIEN [Concomitant]
     Active Substance: ZOLPIDEM TARTRATE
     Route: 050
  4. LISINOPRIL [Concomitant]
     Active Substance: LISINOPRIL
     Route: 050
  5. RANITIDINE HYDROCHLORIDE [Concomitant]
     Active Substance: RANITIDINE HYDROCHLORIDE
     Route: 050
  6. GABAPENTIN [Concomitant]
     Active Substance: GABAPENTIN
     Route: 050
  7. IBUPROFEN [Concomitant]
     Active Substance: IBUPROFEN
     Route: 050
  8. HYDROXYZINE HYDROCHLORIDE [Concomitant]
     Active Substance: HYDROXYZINE HYDROCHLORIDE
     Route: 050
  9. BAYER ASPIRIN [Concomitant]
     Active Substance: ASPIRIN
     Route: 050
  10. DULOXETINE HYDROCHLORIDE [Concomitant]
     Active Substance: DULOXETINE HYDROCHLORIDE
     Route: 050
  11. ONDANSETRON [Concomitant]
     Active Substance: ONDANSETRON
     Route: 050
  12. AMLODIPINE BESYLATE [Concomitant]
     Active Substance: AMLODIPINE BESYLATE
     Route: 050
  13. TYLENOL [Concomitant]
     Active Substance: ACETAMINOPHEN
     Route: 050
  14. TRAZODONE HCL [Concomitant]
     Active Substance: TRAZODONE HYDROCHLORIDE
     Route: 050
  15. QUETIAPINE FUMARATE [Concomitant]
     Active Substance: QUETIAPINE FUMARATE
     Route: 050
  16. VITAMIN D3 [Concomitant]
     Active Substance: CHOLECALCIFEROL
     Route: 050
  17. ATORVASTATIN CALCIUM [Concomitant]
     Active Substance: ATORVASTATIN CALCIUM
     Route: 050
  18. BUTALBITAL AND ACETAMINOPHEN [Concomitant]
     Active Substance: ACETAMINOPHEN\BUTALBITAL
     Route: 050
  19. OXCARBAZEPINE [Concomitant]
     Active Substance: OXCARBAZEPINE
     Route: 050
  20. LOSARTAN POTASSIUM [Concomitant]
     Active Substance: LOSARTAN POTASSIUM
     Route: 050

REACTIONS (3)
  - Intentional product misuse [Not Recovered/Not Resolved]
  - Prescribed overdose [Unknown]
  - Multiple sclerosis [Unknown]

NARRATIVE: CASE EVENT DATE: 20241125
